FAERS Safety Report 6872212-9 (Version None)
Quarter: 2010Q3

REPORT INFORMATION
  Report Type: 
  Country: None (occurrence: None)
  Receive Date: 20100721
  Receipt Date: 20100715
  Transmission Date: 20110219
  Serious: Yes (Hospitalization)
  Sender: FDA-Public Use
  Company Number: RB-10510-2010

PATIENT
  Age: 72 Year
  Sex: Female

DRUGS (9)
  1. SUBOXONE [Suspect]
     Indication: DRUG DEPENDENCE
     Dosage: 8 MG SUBLINGUAL, 2 MG TID SUBLINGUAL, 2 MG SUBLINGUAL
     Route: 060
     Dates: start: 20070101, end: 20080101
  2. SUBOXONE [Suspect]
     Indication: PAIN
     Dosage: 8 MG SUBLINGUAL, 2 MG TID SUBLINGUAL, 2 MG SUBLINGUAL
     Route: 060
     Dates: start: 20070101, end: 20080101
  3. SUBOXONE [Suspect]
     Indication: DRUG DEPENDENCE
     Dosage: 8 MG SUBLINGUAL, 2 MG TID SUBLINGUAL, 2 MG SUBLINGUAL
     Route: 060
     Dates: start: 20080101, end: 20100501
  4. SUBOXONE [Suspect]
     Indication: PAIN
     Dosage: 8 MG SUBLINGUAL, 2 MG TID SUBLINGUAL, 2 MG SUBLINGUAL
     Route: 060
     Dates: start: 20080101, end: 20100501
  5. SUBOXONE [Suspect]
     Indication: DRUG DEPENDENCE
     Dosage: 8 MG SUBLINGUAL, 2 MG TID SUBLINGUAL, 2 MG SUBLINGUAL
     Route: 060
     Dates: start: 20100502, end: 20100506
  6. SUBOXONE [Suspect]
     Indication: PAIN
     Dosage: 8 MG SUBLINGUAL, 2 MG TID SUBLINGUAL, 2 MG SUBLINGUAL
     Route: 060
     Dates: start: 20100502, end: 20100506
  7. LOPRESSOR [Concomitant]
  8. SYNTHROID [Concomitant]
  9. ASPIRIN [Concomitant]

REACTIONS (6)
  - BLOOD PRESSURE INCREASED [None]
  - CONDITION AGGRAVATED [None]
  - DRUG WITHDRAWAL SYNDROME [None]
  - INSOMNIA [None]
  - LOSS OF CONSCIOUSNESS [None]
  - MUSCULAR WEAKNESS [None]
